FAERS Safety Report 23695931 (Version 1)
Quarter: 2024Q2

REPORT INFORMATION
  Report Type: Spontaneous
  Country: DE (occurrence: DE)
  Receive Date: 20240402
  Receipt Date: 20240402
  Transmission Date: 20240716
  Serious: Yes (Other)
  Sender: FDA-Public Use
  Company Number: DE-002147023-NVSC2022DE258870

PATIENT
  Age: 4 Decade
  Sex: Male

DRUGS (3)
  1. CARBAMAZEPINE [Suspect]
     Active Substance: CARBAMAZEPINE
     Indication: Dyskinesia
     Dosage: 800 MG, QD
     Route: 065
  2. VALPROATE [Suspect]
     Active Substance: VALPROIC ACID
     Indication: Dyskinesia
     Dosage: UNK
     Route: 065
  3. TIAPRIDE [Suspect]
     Active Substance: TIAPRIDE
     Indication: Dyskinesia
     Dosage: UNK
     Route: 065

REACTIONS (4)
  - Off label use [Unknown]
  - Dizziness [Unknown]
  - Drug ineffective [Unknown]
  - Product use in unapproved indication [Unknown]
